FAERS Safety Report 13303776 (Version 2)
Quarter: 2017Q1

REPORT INFORMATION
  Report Type: Report from Study
  Country: US (occurrence: US)
  Receive Date: 20170307
  Receipt Date: 20170323
  Transmission Date: 20170428
  Serious: Yes (Other)
  Sender: FDA-Public Use
  Company Number: US-JAZZ-2017-US-001488

PATIENT
  Sex: Female

DRUGS (27)
  1. XYREM [Suspect]
     Active Substance: SODIUM OXYBATE
     Indication: NARCOLEPSY
     Dosage: 2.25 G, BID
     Route: 048
     Dates: start: 201007, end: 2010
  2. XYREM [Suspect]
     Active Substance: SODIUM OXYBATE
     Indication: CATAPLEXY
     Dosage: DOSE ADJUSTMENT
     Route: 048
     Dates: start: 2010, end: 2013
  3. BRINTELLIX [Concomitant]
     Active Substance: VORTIOXETINE HYDROBROMIDE
  4. POTASSIUM CHLORIDE. [Concomitant]
     Active Substance: POTASSIUM CHLORIDE
  5. CARISOPRODOL. [Concomitant]
     Active Substance: CARISOPRODOL
  6. SPIRONOLACTONE. [Concomitant]
     Active Substance: SPIRONOLACTONE
  7. HUMALOG [Concomitant]
     Active Substance: INSULIN LISPRO
  8. ZYPREXA [Concomitant]
     Active Substance: OLANZAPINE
  9. LISINOPRIL. [Concomitant]
     Active Substance: LISINOPRIL
  10. MELATONIN [Concomitant]
     Active Substance: MELATONIN
  11. VITAMIN D                          /00107901/ [Concomitant]
     Active Substance: ERGOCALCIFEROL
  12. NUVIGIL [Concomitant]
     Active Substance: ARMODAFINIL
  13. VICODIN [Concomitant]
     Active Substance: ACETAMINOPHEN\HYDROCODONE BITARTRATE
  14. XYREM [Suspect]
     Active Substance: SODIUM OXYBATE
     Dosage: 4.5 G, BID
     Route: 048
     Dates: start: 201408
  15. LABETALOL HCL [Concomitant]
     Active Substance: LABETALOL HYDROCHLORIDE
  16. OMEGA-3                            /01866101/ [Concomitant]
     Active Substance: OMEGA-3 FATTY ACIDS
  17. PROZAC [Concomitant]
     Active Substance: FLUOXETINE HYDROCHLORIDE
  18. GABAPENTIN. [Concomitant]
     Active Substance: GABAPENTIN
  19. METFORMIN HCL [Concomitant]
     Active Substance: METFORMIN HYDROCHLORIDE
  20. PROMETHAZINE                       /00033002/ [Concomitant]
     Active Substance: PROMETHAZINE HYDROCHLORIDE
  21. CLARITHROMYCIN. [Concomitant]
     Active Substance: CLARITHROMYCIN
  22. CLONIDINE. [Concomitant]
     Active Substance: CLONIDINE
  23. RESTORIL [Concomitant]
     Active Substance: TEMAZEPAM
  24. GLYBURIDE. [Concomitant]
     Active Substance: GLYBURIDE
  25. DIPHENHYDRAMINE                    /00000402/ [Concomitant]
     Active Substance: DIPHENHYDRAMINE
  26. FERROUS FUMARATE [Concomitant]
     Active Substance: FERROUS FUMARATE
  27. IBUPROFEN. [Concomitant]
     Active Substance: IBUPROFEN

REACTIONS (2)
  - Memory impairment [Unknown]
  - Lumbar spinal stenosis [Not Recovered/Not Resolved]
